FAERS Safety Report 12954396 (Version 1)
Quarter: 2016Q4

REPORT INFORMATION
  Report Type: Spontaneous
  Country: US (occurrence: US)
  Receive Date: 20161118
  Receipt Date: 20161118
  Transmission Date: 20170207
  Serious: No
  Sender: FDA-Public Use
  Company Number: US-PFIZER INC-2016538121

PATIENT

DRUGS (2)
  1. CHANTIX [Suspect]
     Active Substance: VARENICLINE TARTRATE
     Dosage: ONE PILL IN THE MORNING AND ONE PILL IN NIGHT
  2. CHANTIX [Suspect]
     Active Substance: VARENICLINE TARTRATE
     Dosage: STARTER PACK

REACTIONS (6)
  - Dizziness [Unknown]
  - Malaise [Unknown]
  - Nausea [Unknown]
  - Feeling abnormal [Unknown]
  - Activities of daily living impaired [Unknown]
  - Asthenia [Unknown]
